FAERS Safety Report 6708735-2 (Version None)
Quarter: 2010Q2

REPORT INFORMATION
  Report Type: 
  Country: None (occurrence: None)
  Receive Date: 20100504
  Receipt Date: 20100421
  Transmission Date: 20101027
  Serious: Yes (Hospitalization, Other)
  Sender: FDA-Public Use
  Company Number: US-BIOGENIDEC-2009BI034787

PATIENT
  Age: 47 Year
  Sex: Male
  Weight: 94 kg

DRUGS (7)
  1. TYSABRI [Suspect]
     Indication: CROHN'S DISEASE
     Route: 042
     Dates: start: 20080507, end: 20090921
  2. PENTASA [Concomitant]
     Route: 048
     Dates: start: 20040101
  3. PREDNISONE [Concomitant]
     Route: 048
     Dates: start: 20090101
  4. CIPROFLOXACIN [Concomitant]
     Route: 048
     Dates: start: 20040101
  5. CALCIUM WITH VITAMIN D [Concomitant]
     Route: 048
  6. MULTI-VITAMIN [Concomitant]
     Route: 048
  7. ZANTAC [Concomitant]
     Route: 048

REACTIONS (1)
  - HEPATIC NEOPLASM MALIGNANT [None]
